FAERS Safety Report 9116799 (Version 2)
Quarter: 2013Q1

REPORT INFORMATION
  Report Type: Spontaneous
  Country: AU (occurrence: AU)
  Receive Date: 20130225
  Receipt Date: 20130320
  Transmission Date: 20140127
  Serious: No
  Sender: FDA-Public Use
  Company Number: AU-AMGEN-AUSSP2013011337

PATIENT
  Sex: Female
  Weight: 60 kg

DRUGS (5)
  1. ARANESP [Suspect]
     Indication: ANAEMIA
     Dosage: 20 MUG, Q2WK
     Route: 058
     Dates: start: 20130101, end: 20130201
  2. TRAMADOL [Concomitant]
     Indication: PAIN
     Route: 048
  3. PANADOL                            /00020001/ [Concomitant]
     Indication: PAIN
     Route: 048
  4. AMLODIPIN                          /00972401/ [Concomitant]
     Indication: BLOOD PRESSURE
     Route: 048
  5. YASMIN [Concomitant]
     Indication: ORAL CONTRACEPTION
     Route: 048

REACTIONS (4)
  - Flank pain [Recovered/Resolved]
  - Musculoskeletal chest pain [Recovered/Resolved]
  - Arthralgia [Recovered/Resolved]
  - Pain [Unknown]
